FAERS Safety Report 7241396-5 (Version None)
Quarter: 2011Q1

REPORT INFORMATION
  Report Type: 
  Country: None (occurrence: None)
  Receive Date: 20110124
  Receipt Date: 20110117
  Transmission Date: 20110831
  Serious: Yes (Hospitalization)
  Sender: FDA-Public Use
  Company Number: JP-ROCHE-754401

PATIENT
  Sex: Female

DRUGS (2)
  1. HERCEPTIN [Suspect]
     Indication: BREAST CANCER
     Dosage: DOSAGE WAS UNCERTAIN.
     Route: 041
  2. XELODA [Suspect]
     Indication: BREAST CANCER
     Dosage: DOSAGE WAS UNCERTAIN
     Route: 048

REACTIONS (1)
  - LYMPHADENOPATHY [None]
